FAERS Safety Report 19718889 (Version 2)
Quarter: 2022Q4

REPORT INFORMATION
  Report Type: Report from Study
  Country: DE (occurrence: DE)
  Receive Date: 20210818
  Receipt Date: 20221201
  Transmission Date: 20230112
  Serious: Yes (Other)
  Sender: FDA-Public Use
  Company Number: DE-AMGEN-DEUNI2020171307

PATIENT
  Age: 60 Year
  Sex: Male
  Weight: 64 kg

DRUGS (61)
  1. PANITUMUMAB [Suspect]
     Active Substance: PANITUMUMAB
     Indication: Colorectal cancer metastatic
     Dosage: 380 MILLIGRAM
     Route: 042
     Dates: start: 20200427
  2. PANITUMUMAB [Suspect]
     Active Substance: PANITUMUMAB
     Dosage: 385 MILLIGRAM
     Route: 042
     Dates: start: 20200608
  3. PANITUMUMAB [Suspect]
     Active Substance: PANITUMUMAB
     Dosage: 420 MILLIGRAM
     Route: 042
     Dates: start: 20200622
  4. PANITUMUMAB [Suspect]
     Active Substance: PANITUMUMAB
     Dosage: 425 MILLIGRAM
     Route: 042
     Dates: start: 20200706
  5. PANITUMUMAB [Suspect]
     Active Substance: PANITUMUMAB
     Dosage: 400 MILLIGRAM
     Route: 042
     Dates: start: 20200803
  6. PANITUMUMAB [Suspect]
     Active Substance: PANITUMUMAB
     Dosage: 380 MILLIGRAM
     Route: 042
     Dates: start: 20200831
  7. PANITUMUMAB [Suspect]
     Active Substance: PANITUMUMAB
     Dosage: 400 MILLIGRAM
     Route: 042
     Dates: start: 20200914
  8. PANITUMUMAB [Suspect]
     Active Substance: PANITUMUMAB
     Dosage: 390 MILLIGRAM
     Route: 042
     Dates: start: 20200928
  9. PANITUMUMAB [Suspect]
     Active Substance: PANITUMUMAB
     Dosage: 365 MILLIGRAM
     Route: 042
     Dates: start: 20201012
  10. PANITUMUMAB [Suspect]
     Active Substance: PANITUMUMAB
     Dosage: 390 MILLIGRAM
     Route: 042
     Dates: start: 20201123
  11. PANITUMUMAB [Suspect]
     Active Substance: PANITUMUMAB
     Dosage: 350 MILLIGRAM
     Route: 042
     Dates: start: 20201214
  12. PANITUMUMAB [Suspect]
     Active Substance: PANITUMUMAB
     Dosage: 385 MILLIGRAM
     Route: 042
     Dates: start: 20210317
  13. PANITUMUMAB [Suspect]
     Active Substance: PANITUMUMAB
     Dosage: 375 MILLIGRAM
     Route: 042
     Dates: start: 20210608
  14. PANITUMUMAB [Suspect]
     Active Substance: PANITUMUMAB
     Dosage: 395 MILLIGRAM
     Route: 042
     Dates: start: 20210706
  15. PANITUMUMAB [Suspect]
     Active Substance: PANITUMUMAB
     Dosage: 420 MILLIGRAM
     Route: 042
     Dates: start: 20211020
  16. PANITUMUMAB [Suspect]
     Active Substance: PANITUMUMAB
     Dosage: 335 MILLIGRAM
     Route: 042
     Dates: start: 20211103
  17. LEUCOVORIN [Suspect]
     Active Substance: LEUCOVORIN
     Indication: Colorectal cancer metastatic
     Dosage: 350 MILLIGRAM
     Route: 065
     Dates: start: 20200427
  18. LEUCOVORIN [Suspect]
     Active Substance: LEUCOVORIN
     Dosage: 365 MILLIGRAM
     Route: 065
     Dates: start: 20200706
  19. LEUCOVORIN [Suspect]
     Active Substance: LEUCOVORIN
     Dosage: 740 MILLIGRAM
     Route: 065
     Dates: start: 20200803
  20. LEUCOVORIN [Suspect]
     Active Substance: LEUCOVORIN
     Dosage: 730 MILLIGRAM
     Route: 065
     Dates: start: 20200817
  21. LEUCOVORIN [Suspect]
     Active Substance: LEUCOVORIN
     Dosage: 710 MILLIGRAM
     Route: 065
     Dates: start: 20200928
  22. LEUCOVORIN [Suspect]
     Active Substance: LEUCOVORIN
     Dosage: 700 MILLIGRAM
     Route: 065
     Dates: start: 20201012
  23. LEUCOVORIN [Suspect]
     Active Substance: LEUCOVORIN
     Dosage: 690 MILLIGRAM
     Route: 065
     Dates: start: 20201026
  24. LEUCOVORIN [Suspect]
     Active Substance: LEUCOVORIN
     Dosage: 680 MILLIGRAM
     Route: 065
     Dates: start: 20201214
  25. LEUCOVORIN [Suspect]
     Active Substance: LEUCOVORIN
     Dosage: 710 MILLIGRAM
     Route: 065
     Dates: start: 20210317
  26. LEUCOVORIN [Suspect]
     Active Substance: LEUCOVORIN
     Dosage: 700 MILLIGRAM
     Route: 065
     Dates: start: 20210622
  27. LEUCOVORIN [Suspect]
     Active Substance: LEUCOVORIN
     Dosage: 720 MILLIGRAM
     Route: 065
     Dates: start: 20210706
  28. LEUCOVORIN [Suspect]
     Active Substance: LEUCOVORIN
     Dosage: 50 MILLIGRAM
     Route: 065
     Dates: start: 20210804
  29. FLUOROURACIL [Suspect]
     Active Substance: FLUOROURACIL
     Indication: Colorectal cancer metastatic
     Dosage: 700 MILLIGRAM
     Route: 040
     Dates: start: 20200427
  30. FLUOROURACIL [Suspect]
     Active Substance: FLUOROURACIL
     Dosage: 2110 MILLIGRAM
     Route: 042
     Dates: start: 20200427
  31. FLUOROURACIL [Suspect]
     Active Substance: FLUOROURACIL
     Dosage: 2125 MILLIGRAM
     Route: 042
     Dates: start: 20200608
  32. FLUOROURACIL [Suspect]
     Active Substance: FLUOROURACIL
     Dosage: 735 MILLIGRAM
     Route: 040
     Dates: start: 20200706
  33. FLUOROURACIL [Suspect]
     Active Substance: FLUOROURACIL
     Dosage: 2220 MILLIGRAM
     Route: 042
     Dates: start: 20200706
  34. FLUOROURACIL [Suspect]
     Active Substance: FLUOROURACIL
     Dosage: 740 MILLIGRAM
     Route: 040
     Dates: start: 20200803
  35. FLUOROURACIL [Suspect]
     Active Substance: FLUOROURACIL
     Dosage: 4440 MILLIGRAM
     Route: 042
     Dates: start: 20200803
  36. FLUOROURACIL [Suspect]
     Active Substance: FLUOROURACIL
     Dosage: 730 MILLIGRAM
     Route: 040
     Dates: start: 20200817
  37. FLUOROURACIL [Suspect]
     Active Substance: FLUOROURACIL
     Dosage: 4370 MILLIGRAM
     Route: 042
     Dates: start: 20200817
  38. FLUOROURACIL [Suspect]
     Active Substance: FLUOROURACIL
     Dosage: 710 MILLIGRAM
     Route: 040
     Dates: start: 20200928
  39. FLUOROURACIL [Suspect]
     Active Substance: FLUOROURACIL
     Dosage: 4270 MILLIGRAM
     Route: 042
     Dates: start: 20200928
  40. FLUOROURACIL [Suspect]
     Active Substance: FLUOROURACIL
     Dosage: 700 MILLIGRAM
     Route: 040
     Dates: start: 20201012
  41. FLUOROURACIL [Suspect]
     Active Substance: FLUOROURACIL
     Dosage: 4225 MILLIGRAM
     Route: 042
     Dates: start: 20201012
  42. FLUOROURACIL [Suspect]
     Active Substance: FLUOROURACIL
     Dosage: 4150 MILLIGRAM
     Route: 042
     Dates: start: 20201026
  43. FLUOROURACIL [Suspect]
     Active Substance: FLUOROURACIL
     Dosage: 690 MILLIGRAM
     Route: 040
     Dates: start: 20201026
  44. FLUOROURACIL [Suspect]
     Active Substance: FLUOROURACIL
     Dosage: 680 MILLIGRAM
     Route: 040
     Dates: start: 20201214
  45. FLUOROURACIL [Suspect]
     Active Substance: FLUOROURACIL
     Dosage: 4045 MILLIGRAM
     Route: 042
     Dates: start: 20201214
  46. FLUOROURACIL [Suspect]
     Active Substance: FLUOROURACIL
     Dosage: 710 MILLIGRAM
     Route: 040
     Dates: start: 20210317
  47. FLUOROURACIL [Suspect]
     Active Substance: FLUOROURACIL
     Dosage: 4250 MILLIGRAM
     Route: 042
     Dates: start: 20210317
  48. FLUOROURACIL [Suspect]
     Active Substance: FLUOROURACIL
     Dosage: 700 MILLIGRAM
     Route: 040
     Dates: start: 20210622
  49. FLUOROURACIL [Suspect]
     Active Substance: FLUOROURACIL
     Dosage: 4225 MILLIGRAM
     Route: 040
     Dates: start: 20210622
  50. FLUOROURACIL [Suspect]
     Active Substance: FLUOROURACIL
     Dosage: 720 MILLIGRAM
     Route: 040
     Dates: start: 20210706
  51. FLUOROURACIL [Suspect]
     Active Substance: FLUOROURACIL
     Dosage: 4320 MILLIGRAM
     Route: 040
     Dates: start: 20210706
  52. FLUOROURACIL [Suspect]
     Active Substance: FLUOROURACIL
     Dosage: 735 MILLIGRAM
     Route: 040
     Dates: start: 20211020
  53. FLUOROURACIL [Suspect]
     Active Substance: FLUOROURACIL
     Dosage: 4415 MILLIGRAM
     Route: 040
     Dates: start: 20211020
  54. FLUOROURACIL [Suspect]
     Active Substance: FLUOROURACIL
     Dosage: 600 MILLIGRAM
     Route: 040
     Dates: start: 20211103
  55. FLUOROURACIL [Suspect]
     Active Substance: FLUOROURACIL
     Dosage: 3525 MILLIGRAM
     Route: 040
     Dates: start: 20211103
  56. FLUOROURACIL [Suspect]
     Active Substance: FLUOROURACIL
     Dosage: 590 MILLIGRAM
     Route: 040
     Dates: start: 20211117
  57. FLUOROURACIL [Suspect]
     Active Substance: FLUOROURACIL
     Dosage: 3540 MILLIGRAM
     Route: 040
     Dates: start: 20211117
  58. FLUOROURACIL [Suspect]
     Active Substance: FLUOROURACIL
     Dosage: 600 MILLIGRAM
     Route: 040
     Dates: start: 20211201
  59. FLUOROURACIL [Suspect]
     Active Substance: FLUOROURACIL
     Dosage: 3550 MILLIGRAM
     Route: 040
     Dates: start: 20211201
  60. OXALIPLATIN [Suspect]
     Active Substance: OXALIPLATIN
     Indication: Colorectal cancer metastatic
     Dosage: 150 MILLIGRAM
     Route: 065
     Dates: start: 20200427
  61. OXALIPLATIN [Suspect]
     Active Substance: OXALIPLATIN
     Dosage: 155 MILLIGRAM
     Route: 065
     Dates: start: 20200706

REACTIONS (4)
  - Thrombosis [Recovered/Resolved]
  - Hypokalaemia [Recovered/Resolved]
  - Dry skin [Not Recovered/Not Resolved]
  - Hypocalcaemia [Recovered/Resolved]

NARRATIVE: CASE EVENT DATE: 20201001
